FAERS Safety Report 24114440 (Version 3)
Quarter: 2025Q1

REPORT INFORMATION
  Report Type: Spontaneous
  Country: IN (occurrence: IN)
  Receive Date: 20240720
  Receipt Date: 20250121
  Transmission Date: 20250409
  Serious: Yes (Other)
  Sender: RANBAXY
  Company Number: IN-SUN PHARMACEUTICAL INDUSTRIES LTD-2024R1-457335

PATIENT
  Age: 35 Year
  Sex: Female

DRUGS (6)
  1. DEXAMETHASONE [Suspect]
     Active Substance: DEXAMETHASONE
     Indication: Weight increased
     Dosage: 4 MILLIGRAM, DAILY
     Route: 065
  2. DEXAMETHASONE [Suspect]
     Active Substance: DEXAMETHASONE
     Indication: Muscle mass
     Dosage: 0.5 MILLIGRAM, BID
     Route: 065
  3. DEXAMETHASONE [Suspect]
     Active Substance: DEXAMETHASONE
     Indication: General physical condition abnormal
  4. CYPROHEPTADINE [Suspect]
     Active Substance: CYPROHEPTADINE
     Indication: Weight increased
     Dosage: 4 MILLIGRAM, DAILY
     Route: 065
  5. CYPROHEPTADINE [Suspect]
     Active Substance: CYPROHEPTADINE
     Indication: Muscle mass
     Route: 065
  6. CYPROHEPTADINE [Suspect]
     Active Substance: CYPROHEPTADINE
     Indication: General physical condition abnormal
     Route: 065

REACTIONS (20)
  - Drug dependence [Unknown]
  - Depression [Unknown]
  - Withdrawal syndrome [Unknown]
  - Anxiety [Recovering/Resolving]
  - Palpitations [Unknown]
  - Irritability [Unknown]
  - Insomnia [Unknown]
  - Decreased appetite [Unknown]
  - Weight decreased [Unknown]
  - Dizziness [Unknown]
  - Malaise [Unknown]
  - Nausea [Unknown]
  - Restlessness [Unknown]
  - Dyspepsia [Unknown]
  - Regurgitation [Unknown]
  - Cough [Unknown]
  - Nasopharyngitis [Unknown]
  - Abdominal distension [Unknown]
  - Limb asymmetry [Unknown]
  - Central obesity [Unknown]
